FAERS Safety Report 7169851-7 (Version None)
Quarter: 2010Q4

REPORT INFORMATION
  Report Type: 
  Country: None (occurrence: None)
  Receive Date: 20101217
  Receipt Date: 20101206
  Transmission Date: 20110411
  Serious: Yes (Hospitalization, Other)
  Sender: FDA-Public Use
  Company Number: PHHY2009CA16639

PATIENT
  Sex: Female

DRUGS (17)
  1. SANDOSTATIN LAR [Suspect]
     Indication: CARCINOID TUMOUR
     Dosage: 40 MG EVERY 4 WEEKS
     Route: 030
     Dates: start: 19900401
  2. SANDOSTATIN LAR [Suspect]
     Dosage: 50 MG EVERY 4 WEEKS
     Route: 030
     Dates: start: 20001106
  3. SANDOSTATIN LAR [Suspect]
     Dosage: 50 MG, QMO
     Route: 030
  4. METFORMIN [Concomitant]
  5. METOPROLOL [Concomitant]
  6. LASIX [Concomitant]
  7. ZANTAC [Concomitant]
     Dosage: 75 MG
     Route: 048
  8. INSULIN [Concomitant]
  9. COZAAR [Concomitant]
     Dosage: 50 ML
  10. PARIET [Concomitant]
  11. FUROSEMIDE [Concomitant]
     Dosage: UNK/DAY
  12. POTASSIUM [Concomitant]
     Dosage: UNK/DAY
  13. ASPIRIN [Concomitant]
     Dosage: UNK/DAY
  14. LOSARTAN [Concomitant]
     Dosage: UNK/DAY
  15. RABEPRAZOLE SODIUM [Concomitant]
     Dosage: UNK/DAY
  16. ACETAMINOPHEN [Concomitant]
     Dosage: UNK/DAY
  17. METHOTREXATE [Concomitant]
     Indication: PSORIATIC ARTHROPATHY

REACTIONS (15)
  - BALANCE DISORDER [None]
  - CARDIAC FAILURE [None]
  - CONCUSSION [None]
  - CORONARY ARTERY BYPASS [None]
  - CORONARY ARTERY DISEASE [None]
  - DIZZINESS [None]
  - DYSPNOEA [None]
  - FALL [None]
  - FATIGUE [None]
  - FLATULENCE [None]
  - FLUSHING [None]
  - HAEMOGLOBIN DECREASED [None]
  - INJURY [None]
  - OEDEMA PERIPHERAL [None]
  - SCIATICA [None]
